FAERS Safety Report 23854171 (Version 2)
Quarter: 2024Q2

REPORT INFORMATION
  Report Type: Report from Study
  Country: US (occurrence: US)
  Receive Date: 20240514
  Receipt Date: 20240531
  Transmission Date: 20240716
  Serious: Yes (Hospitalization)
  Sender: FDA-Public Use
  Company Number: US-BAYER-2024A067737

PATIENT
  Age: 64 Year
  Sex: Female
  Weight: 56.78 kg

DRUGS (20)
  1. ADEMPAS [Suspect]
     Active Substance: RIOCIGUAT
     Indication: Pulmonary arterial hypertension
     Dosage: UNK
     Dates: start: 20220627
  2. ADEMPAS [Suspect]
     Active Substance: RIOCIGUAT
     Indication: Pulmonary arterial hypertension
     Dosage: 2.5 MG, TID
     Route: 048
  3. UPTRAVI [Suspect]
     Active Substance: SELEXIPAG
  4. FUROSEMIDE [Concomitant]
     Active Substance: FUROSEMIDE
  5. AMBRISENTAN [Concomitant]
     Active Substance: AMBRISENTAN
  6. VITAMINS [Concomitant]
     Active Substance: VITAMINS
  7. ATORVASTATIN CALCIUM [Concomitant]
     Active Substance: ATORVASTATIN CALCIUM
  8. EYLEA [Concomitant]
     Active Substance: AFLIBERCEPT
  9. HYDROXYCHLOROQUINE SULFATE [Concomitant]
     Active Substance: HYDROXYCHLOROQUINE SULFATE
  10. LOPERAMIDE [Concomitant]
     Active Substance: LOPERAMIDE
  11. VITAMIN D2 [Concomitant]
     Active Substance: ERGOCALCIFEROL
  12. VITAMIN K [Concomitant]
     Active Substance: PHYTONADIONE
  13. METOPROLOL SUCCINATE [Concomitant]
     Active Substance: METOPROLOL SUCCINATE
  14. SACCHAROMYCES CEREVISIAE [Concomitant]
     Active Substance: SACCHAROMYCES CEREVISIAE
  15. MIDODRINE HYDROCHLORIDE [Concomitant]
     Active Substance: MIDODRINE HYDROCHLORIDE
  16. FAMOTIDINE [Concomitant]
     Active Substance: FAMOTIDINE
  17. ESTRADIOL [Concomitant]
     Active Substance: ESTRADIOL
     Dosage: UNK UNK, OW
  18. ASPIRIN [Concomitant]
     Active Substance: ASPIRIN
  19. SOTATERCEPT [Concomitant]
     Active Substance: SOTATERCEPT
  20. OXYGEN [Concomitant]
     Active Substance: OXYGEN

REACTIONS (12)
  - Dyspnoea [Not Recovered/Not Resolved]
  - Dyspnoea [None]
  - Hypervolaemia [None]
  - Pulmonary arterial hypertension [None]
  - Oxygen saturation decreased [None]
  - Peripheral swelling [None]
  - Swelling face [None]
  - Tinnitus [None]
  - Headache [None]
  - Ear discomfort [None]
  - Hypoacusis [None]
  - Peripheral swelling [None]

NARRATIVE: CASE EVENT DATE: 20240501
